FAERS Safety Report 9063267 (Version 1)
Quarter: 2013Q1

REPORT INFORMATION
  Report Type: Spontaneous
  Country: DE (occurrence: DE)
  Receive Date: 20130213
  Receipt Date: 20130213
  Transmission Date: 20140127
  Serious: Yes (Death, Hospitalization)
  Sender: FDA-Public Use
  Company Number: DE-GLAXOSMITHKLINE-D0078476A

PATIENT
  Sex: Female

DRUGS (2)
  1. VOTRIENT [Suspect]
     Dosage: 400MG PER DAY
     Route: 048
  2. ANTI-HYPERTENSIVE [Concomitant]
     Route: 065

REACTIONS (6)
  - Brain stem infarction [Fatal]
  - Haematemesis [Unknown]
  - Pupillary reflex impaired [Unknown]
  - Somnolence [Unknown]
  - Nausea [Unknown]
  - Hypertension [Unknown]
